FAERS Safety Report 6944470-3 (Version None)
Quarter: 2010Q3

REPORT INFORMATION
  Report Type: 
  Country: None (occurrence: None)
  Receive Date: 20100827
  Receipt Date: 20100817
  Transmission Date: 20110219
  Serious: Yes (Death, Life-Threatening)
  Sender: FDA-Public Use
  Company Number: JP-PFIZER INC-2010100533

PATIENT
  Age: 50 Year
  Sex: Female
  Weight: 56 kg

DRUGS (28)
  1. LYRICA [Suspect]
     Indication: POST HERPETIC NEURALGIA
     Dosage: 75 MG, 1X/DAY
     Route: 048
     Dates: start: 20100806, end: 20100806
  2. CODEINE PHOSPHATE [Concomitant]
     Indication: POST HERPETIC NEURALGIA
     Dosage: 20 MG, 3X/DAY
     Route: 048
     Dates: start: 20100711, end: 20100806
  3. AMITRIPTYLINE HCL [Concomitant]
     Indication: POST HERPETIC NEURALGIA
     Dosage: 50 MG, 1X/DAY
     Route: 048
     Dates: start: 20100708, end: 20100806
  4. LASIX [Concomitant]
     Indication: CARDIAC FAILURE CONGESTIVE
     Dosage: 40 MG, 1X/DAY
     Route: 048
     Dates: end: 20100806
  5. ALDACTONE [Concomitant]
     Indication: CARDIAC FAILURE CONGESTIVE
     Dosage: 25 MG, 1X/DAY
     Route: 048
     Dates: end: 20100806
  6. ASPARA-CA [Concomitant]
     Indication: HYPOCALCAEMIA
     Dosage: 200 MG, 3X/DAY
     Route: 048
     Dates: end: 20100806
  7. DEPAS [Concomitant]
     Indication: INSOMNIA
     Dosage: 0.5 MG, 1X/DAY
     Route: 048
     Dates: end: 20100806
  8. ELENTAL [Concomitant]
     Indication: HYPOALBUMINAEMIA
     Dosage: 80 G, 2X/DAY
     Route: 048
     Dates: end: 20100806
  9. ONE-ALPHA [Concomitant]
     Indication: OSTEOPOROSIS
     Dosage: 0.25 UG, 3X/DAY
     Route: 048
     Dates: end: 20100806
  10. OMEPRAL [Concomitant]
     Indication: REFLUX OESOPHAGITIS
     Dosage: 20 MG, 1X/DAY
     Route: 048
     Dates: start: 20100723, end: 20100806
  11. ULCERLMIN [Concomitant]
     Indication: REFLUX OESOPHAGITIS
     Dosage: 900 MG, 3X/DAY
     Route: 048
     Dates: start: 20100723, end: 20100806
  12. CALONAL [Concomitant]
     Indication: POST HERPETIC NEURALGIA
     Dosage: 400 MG, 2X/DAY
     Route: 048
     Dates: start: 20100727, end: 20100806
  13. NEUROTROPIN [Concomitant]
     Indication: POST HERPETIC NEURALGIA
     Dosage: 2 IU, 2X/DAY
     Route: 048
     Dates: start: 20100802, end: 20100806
  14. ALLEGRA [Concomitant]
     Indication: PRURITUS
     Dosage: 30 MG, 2X/DAY
     Route: 048
     Dates: start: 20100726, end: 20100802
  15. PREDONINE [Concomitant]
     Indication: FACIAL NEURALGIA
     Dosage: 30 MG, 1X/DAY
     Route: 048
     Dates: start: 20100708, end: 20100714
  16. PREDONINE [Concomitant]
     Dosage: 20 MG, 1X/DAY
     Route: 048
     Dates: start: 20100715, end: 20100717
  17. PREDONINE [Concomitant]
     Dosage: 10 MG, 1X/DAY
     Route: 048
     Dates: start: 20100718, end: 20100720
  18. HEPARIN SODIUM [Concomitant]
     Indication: IMMUNODEFICIENCY
     Dosage: 6 ML, 2X/WEEK
     Route: 042
     Dates: start: 20100705, end: 20100719
  19. ACICLOVIR [Concomitant]
     Indication: HERPES ZOSTER
     Dosage: 250 MG, 2X/DAY
     Route: 042
     Dates: start: 20100708, end: 20100715
  20. POLIGLOBIN N [Concomitant]
     Indication: IMMUNODEFICIENCY
     Dosage: 2 DF, 1X/DAY
     Route: 042
     Dates: start: 20100708, end: 20100710
  21. SULBACTAM [Concomitant]
     Indication: INFECTION
     Dosage: 1.5 G, 2X/DAY
     Route: 042
     Dates: start: 20100721, end: 20100721
  22. VANCOMYCIN [Concomitant]
     Indication: STAPHYLOCOCCAL SEPSIS
     Dosage: 2 DF, 2X/DAY
     Route: 042
     Dates: start: 20100722, end: 20100729
  23. ALBUMINAR [Concomitant]
     Indication: HYPOALBUMINAEMIA
     Dosage: 1 DF, 1X/DAY
     Route: 042
     Dates: start: 20100721, end: 20100723
  24. ALBUMINAR [Concomitant]
     Dosage: 1 DF, 1X/DAY
     Route: 042
     Dates: start: 20100726, end: 20100726
  25. ALBUMINAR [Concomitant]
     Dosage: 1 DF, 1X/DAY
     Route: 042
     Dates: start: 20100802, end: 20100802
  26. DOPAMINE HYDROCHLORIDE [Concomitant]
     Indication: BLOOD PRESSURE DECREASED
     Dosage: 10 ML/H, 2X/DAY
     Route: 042
     Dates: start: 20100721, end: 20100721
  27. PRIMPERAN TAB [Concomitant]
     Indication: VOMITING
     Dosage: 1 DF, 1X/DAY
     Route: 042
     Dates: start: 20100721, end: 20100728
  28. BUSCOPAN [Concomitant]
     Indication: ACUTE ABDOMEN
     Dosage: 1 DF, 1X/DAY
     Route: 042
     Dates: start: 20100721, end: 20100721

REACTIONS (2)
  - CARDIAC FAILURE ACUTE [None]
  - DYSPNOEA [None]
